FAERS Safety Report 4508958-7 (Version None)
Quarter: 2004Q4

REPORT INFORMATION
  Report Type: 
  Country: None (occurrence: None)
  Receive Date: 20041122
  Receipt Date: 20041112
  Transmission Date: 20050328
  Serious: Yes (Death)
  Sender: FDA-Public Use
  Company Number: STA-AE-04-MTX-568

PATIENT
  Age: 82 Year
  Sex: Female

DRUGS (7)
  1. RHEUMATREX [Suspect]
     Indication: RHEUMATOID ARTHRITIS
     Dosage: 4 MG 1X PER 1 WK, ORAL
     Route: 048
     Dates: start: 20041019, end: 20041026
  2. PREDNISOLONE [Concomitant]
  3. RIMATIL       (BUCILLAMINE) [Concomitant]
  4. LOXONIN (LOXOPROFEN SODIUM) [Concomitant]
  5. SELBEX (TEPRENONE) [Concomitant]
  6. NORVASC [Concomitant]
  7. LASIX [Concomitant]

REACTIONS (5)
  - ARTHRALGIA [None]
  - ATRIAL FLUTTER [None]
  - CARDIAC AMYLOIDOSIS [None]
  - DEEP VEIN THROMBOSIS [None]
  - HYPOTENSION [None]
